FAERS Safety Report 12302627 (Version 1)
Quarter: 2016Q2

REPORT INFORMATION
  Report Type: Spontaneous
  Country: US (occurrence: US)
  Receive Date: 20160425
  Receipt Date: 20160425
  Transmission Date: 20160815
  Serious: No
  Sender: FDA-Public Use
  Company Number: US-SA-2015SA159145

PATIENT
  Age: 36 Year
  Sex: Female

DRUGS (4)
  1. LOVENOX [Suspect]
     Active Substance: ENOXAPARIN SODIUM
     Indication: BLOOD DISORDER
     Dosage: START DATE: 12 DAYS?DOSAGE STRENGTH: 40MG/0,4 ML
     Route: 065
     Dates: start: 201510
  2. LOVENOX [Suspect]
     Active Substance: ENOXAPARIN SODIUM
     Indication: INFERTILITY
     Dosage: START DATE: 12 DAYS?DOSAGE STRENGTH: 40MG/0,4 ML
     Route: 065
     Dates: start: 201510
  3. LOVENOX [Suspect]
     Active Substance: ENOXAPARIN SODIUM
     Indication: BLOOD DISORDER
     Dosage: START DATE: 12 DAYS?DOSAGE STRENGTH: 40MG/0,4 ML
     Route: 065
     Dates: start: 201510
  4. LOVENOX [Suspect]
     Active Substance: ENOXAPARIN SODIUM
     Indication: INFERTILITY
     Dosage: START DATE: 12 DAYS?DOSAGE STRENGTH: 40MG/0,4 ML
     Route: 065
     Dates: start: 201510

REACTIONS (2)
  - Injection site scar [Unknown]
  - Underdose [Unknown]
